FAERS Safety Report 22323491 (Version 3)
Quarter: 2023Q2

REPORT INFORMATION
  Report Type: Spontaneous
  Country: CN (occurrence: CN)
  Receive Date: 20230516
  Receipt Date: 20230526
  Transmission Date: 20230722
  Serious: Yes (Hospitalization, Other)
  Sender: FDA-Public Use
  Company Number: CN-SANOFI-01605985

PATIENT
  Age: 51 Year
  Sex: Male

DRUGS (3)
  1. PRALUENT [Suspect]
     Active Substance: ALIROCUMAB
     Indication: Coronary artery disease
     Dosage: UNK UNK, QM
     Dates: start: 202206, end: 2022
  2. PRALUENT [Suspect]
     Active Substance: ALIROCUMAB
     Dosage: 75 MG, QOW
     Route: 058
     Dates: start: 2022, end: 202210
  3. PITAVASTATIN CALCIUM [Concomitant]
     Active Substance: PITAVASTATIN CALCIUM
     Indication: Product used for unknown indication
     Dosage: UNK

REACTIONS (9)
  - Vasculitis [Recovering/Resolving]
  - Abdominal infection [Recovering/Resolving]
  - Granulomatosis with polyangiitis [Unknown]
  - Abdominal discomfort [Recovering/Resolving]
  - Ocular discomfort [Unknown]
  - Erythema [Unknown]
  - Malaise [Unknown]
  - Antineutrophil cytoplasmic antibody positive [Recovering/Resolving]
  - Pruritus [Unknown]

NARRATIVE: CASE EVENT DATE: 20221001
